FAERS Safety Report 6630266-9 (Version None)
Quarter: 2010Q1

REPORT INFORMATION
  Report Type: 
  Country: None (occurrence: None)
  Receive Date: 20100311
  Receipt Date: 20100308
  Transmission Date: 20100710
  Serious: Yes (Life-Threatening)
  Sender: FDA-Public Use
  Company Number: B0638189A

PATIENT
  Sex: Male

DRUGS (2)
  1. AUGMENTIN [Suspect]
     Indication: TONSILLITIS
     Route: 048
     Dates: start: 20080101, end: 20080101
  2. SURGAM [Concomitant]
     Indication: TONSILLITIS
     Route: 048
     Dates: start: 20080101, end: 20080101

REACTIONS (5)
  - ANAPHYLACTIC SHOCK [None]
  - ANGIOEDEMA [None]
  - HYPOTENSION [None]
  - SKIN TEST POSITIVE [None]
  - TYPE I HYPERSENSITIVITY [None]
